FAERS Safety Report 24045556 (Version 1)
Quarter: 2024Q3

REPORT INFORMATION
  Report Type: Spontaneous
  Country: US (occurrence: None)
  Receive Date: 20240702
  Receipt Date: 20240702
  Transmission Date: 20241016
  Serious: Yes (Hospitalization)
  Sender: Public
  Company Number: None

PATIENT
  Age: 71 Year
  Sex: Female

DRUGS (27)
  1. OPSUMIT [Suspect]
     Active Substance: MACITENTAN
     Indication: Pulmonary hypertension
     Dosage: 10MG QD ORAL?
     Route: 048
     Dates: start: 20151201, end: 20240629
  2. UNSPECIFIED INGREDIENT [Concomitant]
     Active Substance: UNSPECIFIED INGREDIENT
  3. VITAMINS [Concomitant]
     Active Substance: VITAMINS
  4. MIRTAZAPINE [Concomitant]
     Active Substance: MIRTAZAPINE
  5. ONDANSETRON [Concomitant]
     Active Substance: ONDANSETRON
  6. MECLIZINE [Concomitant]
     Active Substance: MECLIZINE HYDROCHLORIDE
  7. FERROUS SULFATE [Concomitant]
     Active Substance: FERROUS SULFATE
  8. SILDENAFIL [Concomitant]
     Active Substance: SILDENAFIL
  9. TREPROSTINIL [Concomitant]
     Active Substance: TREPROSTINIL
  10. WARFARIN [Concomitant]
     Active Substance: WARFARIN
  11. HYDROXYCHLOROQUINE [Concomitant]
     Active Substance: HYDROXYCHLOROQUINE
  12. DIGOXIN [Concomitant]
     Active Substance: DIGOXIN
  13. ROSUVASTATIN [Concomitant]
     Active Substance: ROSUVASTATIN
  14. DUONEB [Concomitant]
     Active Substance: ALBUTEROL SULFATE\IPRATROPIUM BROMIDE
  15. COLACE [Concomitant]
     Active Substance: DOCUSATE SODIUM
  16. HYDRALAZINE [Concomitant]
     Active Substance: HYDRALAZINE HYDROCHLORIDE
  17. PANTOPRAZOLE [Concomitant]
     Active Substance: PANTOPRAZOLE
  18. LOSARTAN [Concomitant]
     Active Substance: LOSARTAN
  19. CARVEDILOL [Concomitant]
     Active Substance: CARVEDILOL
  20. TYLENOL [Concomitant]
     Active Substance: ACETAMINOPHEN
  21. ROBITUSSIN DM [Concomitant]
     Active Substance: DEXTROMETHORPHAN HYDROBROMIDE\GUAIFENESIN
  22. ASCORBIC [Concomitant]
  23. VITAMINS [Concomitant]
     Active Substance: VITAMINS
  24. MIRTAZAPINE [Concomitant]
     Active Substance: MIRTAZAPINE
  25. ONDANSETRON [Concomitant]
     Active Substance: ONDANSETRON
  26. MECLIZINE [Concomitant]
     Active Substance: MECLIZINE HYDROCHLORIDE
  27. FERROUS SULFATE [Concomitant]
     Active Substance: FERROUS SULFATE

REACTIONS (3)
  - Acute kidney injury [None]
  - Cerebellar haemorrhage [None]
  - Hospice care [None]

NARRATIVE: CASE EVENT DATE: 20240618
